FAERS Safety Report 10052137 (Version 1)
Quarter: 2014Q2

REPORT INFORMATION
  Report Type: Report from Study
  Country: US (occurrence: US)
  Receive Date: 20140402
  Receipt Date: 20140402
  Transmission Date: 20141212
  Serious: Yes (Hospitalization)
  Sender: FDA-Public Use
  Company Number: US-ROCHE-1373158

PATIENT
  Sex: Male

DRUGS (4)
  1. NUTROPIN [Suspect]
     Indication: HYPOPITUITARISM
     Route: 058
  2. SYNTHROID [Concomitant]
     Dosage: TABLET
     Route: 065
  3. CITALOPRAM HYDROBROMIDE [Concomitant]
     Dosage: TABLET
     Route: 065
  4. FOSAMAX [Concomitant]
     Dosage: TABLET AS DIRECTED
     Route: 065

REACTIONS (7)
  - Sepsis [Unknown]
  - Fall [Unknown]
  - Spinal column stenosis [Unknown]
  - Vitamin D deficiency [Unknown]
  - Osteoporosis [Unknown]
  - Headache [Unknown]
  - Ear infection [Unknown]
